FAERS Safety Report 9941865 (Version 2)
Quarter: 2014Q1

REPORT INFORMATION
  Report Type: Report from Study
  Country: US (occurrence: US)
  Receive Date: 20140303
  Receipt Date: 20140303
  Transmission Date: 20141002
  Serious: No
  Sender: FDA-Public Use
  Company Number: US-ABBVIE-13P-163-1030177-00

PATIENT
  Age: 56 Year
  Sex: Female
  Weight: 83.99 kg

DRUGS (5)
  1. HUMIRA [Suspect]
     Indication: RHEUMATOID ARTHRITIS
     Route: 058
     Dates: start: 201109
  2. LEFLUNOMIDE [Suspect]
     Indication: PRODUCT USED FOR UNKNOWN INDICATION
     Dates: start: 201211, end: 201212
  3. LEFLUNOMIDE [Suspect]
     Dates: start: 20120102
  4. CENTRUM FOR WOMEN OVER 50 [Concomitant]
     Indication: SUPPLEMENTATION THERAPY
  5. VITAMIN C [Concomitant]
     Indication: SUPPLEMENTATION THERAPY

REACTIONS (13)
  - Dizziness [Recovered/Resolved]
  - Sinusitis [Recovering/Resolving]
  - Dizziness [Recovered/Resolved]
  - Diarrhoea [Recovered/Resolved]
  - Inflammation [Not Recovered/Not Resolved]
  - Dizziness [Not Recovered/Not Resolved]
  - Dizziness [Not Recovered/Not Resolved]
  - Diarrhoea [Not Recovered/Not Resolved]
  - Musculoskeletal stiffness [Unknown]
  - Vitamin D decreased [Recovering/Resolving]
  - Weight decreased [Recovered/Resolved]
  - Rheumatoid arthritis [Recovering/Resolving]
  - Sinusitis [Recovered/Resolved]
